FAERS Safety Report 5019988-3 (Version None)
Quarter: 2006Q2

REPORT INFORMATION
  Report Type: 
  Country: None (occurrence: None)
  Receive Date: 20060602
  Receipt Date: 20060517
  Transmission Date: 20061013
  Serious: Yes (Hospitalization)
  Sender: FDA-Public Use
  Company Number: DSA_28226_2006

PATIENT
  Sex: Male

DRUGS (1)
  1. ATIVAN [Suspect]
     Dosage: DF

REACTIONS (2)
  - CHOLELITHIASIS [None]
  - JAUNDICE [None]
